FAERS Safety Report 4531659-6 (Version None)
Quarter: 2004Q4

REPORT INFORMATION
  Report Type: 
  Country: None (occurrence: None)
  Receive Date: 20041220
  Receipt Date: 20041102
  Transmission Date: 20050328
  Serious: Yes (Life-Threatening, Hospitalization)
  Sender: FDA-Public Use
  Company Number: JP-ABBOTT-04P-087-0279578-00

PATIENT
  Sex: Male
  Weight: 62 kg

DRUGS (20)
  1. SEVOFLURANE [Suspect]
     Indication: ANAESTHESIA
     Route: 055
     Dates: start: 20040203, end: 20040203
  2. SEVOFLURANE [Suspect]
     Route: 055
  3. THIOPENTAL SODIUM [Concomitant]
     Indication: ANAESTHESIA
     Route: 042
     Dates: start: 20040203, end: 20040203
  4. VECURONIUM BROMIDE [Concomitant]
     Indication: ANAESTHESIA
     Route: 042
     Dates: start: 20040203, end: 20040203
  5. NITROUS OXIDE [Concomitant]
     Indication: ANAESTHESIA
     Dosage: 60%
     Route: 055
     Dates: start: 20040203, end: 20040203
  6. OXYGEN [Concomitant]
     Indication: ANAESTHESIA
     Route: 055
  7. CRYSTALLOID SOLUTION [Concomitant]
     Indication: DRUG USE FOR UNKNOWN INDICATION
     Route: 042
  8. PLASMANATE [Concomitant]
     Indication: DRUG USE FOR UNKNOWN INDICATION
     Route: 042
  9. MAP [Concomitant]
     Indication: DRUG USE FOR UNKNOWN INDICATION
  10. PLASMA PROTEIN FRACTION (HUMAN) [Concomitant]
     Indication: DRUG USE FOR UNKNOWN INDICATION
     Route: 042
  11. ATROPINE SULFATE [Concomitant]
     Indication: PREMEDICATION
     Route: 030
     Dates: start: 20040203, end: 20040203
  12. ATROPINE SULFATE [Concomitant]
     Indication: ANAESTHESIA REVERSAL
     Route: 042
     Dates: start: 20040203, end: 20040203
  13. LIDOCAINE HCL [Concomitant]
     Indication: EPIDURAL ANAESTHESIA
     Route: 008
     Dates: start: 20040203, end: 20040203
  14. MORPHINE HYDROCHLORIDE [Concomitant]
     Indication: EPIDURAL ANAESTHESIA
     Route: 008
     Dates: start: 20040203, end: 20040203
  15. ROPIVACAINE [Concomitant]
     Indication: EPIDURAL ANAESTHESIA
     Route: 008
     Dates: start: 20040203, end: 20040203
  16. ROPIVACAINE [Concomitant]
     Route: 008
     Dates: start: 20040203, end: 20040203
  17. EPHEDRINE HCL 1PC SOL [Concomitant]
     Indication: BLOOD PRESSURE
     Route: 042
     Dates: start: 20040203, end: 20040203
  18. FENTANYL CITRATE [Concomitant]
     Indication: ANALGESIC EFFECT
     Route: 042
     Dates: start: 20040203, end: 20040203
  19. NEOSTIGMINE [Concomitant]
     Indication: ANAESTHESIA REVERSAL
     Route: 042
     Dates: start: 20040203, end: 20040203
  20. HYDROXYZINE HYDROCHLORIDE [Concomitant]
     Indication: PREMEDICATION
     Route: 030
     Dates: start: 20040203, end: 20040203

REACTIONS (13)
  - ACIDOSIS [None]
  - ANAESTHETIC COMPLICATION [None]
  - BLOOD PRESSURE INCREASED [None]
  - CHILLS [None]
  - FEELING COLD [None]
  - HEART RATE INCREASED [None]
  - HYPERTHERMIA MALIGNANT [None]
  - INFECTION [None]
  - METABOLIC ACIDOSIS [None]
  - NERVOUS SYSTEM DISORDER [None]
  - PYREXIA [None]
  - RESPIRATORY ACIDOSIS [None]
  - SEDATION [None]
